FAERS Safety Report 8176694-4 (Version None)
Quarter: 2012Q1

REPORT INFORMATION
  Report Type: 
  Country: None (occurrence: None)
  Receive Date: 20120301
  Receipt Date: 20120218
  Transmission Date: 20120608
  Serious: Yes (Other)
  Sender: FDA-Public Use
  Company Number: US-RB-035249-12

PATIENT
  Age: 5 Year
  Sex: Female

DRUGS (1)
  1. DELSYM [Suspect]
     Indication: COUGH
     Route: 048
     Dates: start: 20120217

REACTIONS (3)
  - AGITATION [None]
  - HALLUCINATION [None]
  - ACCIDENTAL DRUG INTAKE BY CHILD [None]
